FAERS Safety Report 5745653-0 (Version None)
Quarter: 2008Q2

REPORT INFORMATION
  Report Type: 
  Country: None (occurrence: None)
  Receive Date: 20080519
  Receipt Date: 20080325
  Transmission Date: 20081010
  Serious: No
  Sender: FDA-Public Use
  Company Number: TPA2008A00390

PATIENT
  Age: 81 Year
  Sex: Male
  Weight: 93.441 kg

DRUGS (5)
  1. ROZEREM [Suspect]
     Indication: INSOMNIA
     Dosage: 8 MG, QHS, PER ORAL
     Route: 048
     Dates: start: 20080301
  2. AMIODARONE HCL [Concomitant]
  3. COUMADIN [Concomitant]
  4. PROZAC [Concomitant]
  5. MAXIVISION (OTHER VITAMIN PRODUCTS, COMBINATIONS) [Concomitant]

REACTIONS (1)
  - INITIAL INSOMNIA [None]
